FAERS Safety Report 10175323 (Version 3)
Quarter: 2014Q3

REPORT INFORMATION
  Report Type: Spontaneous
  Country: US (occurrence: US)
  Receive Date: 20140515
  Receipt Date: 20140819
  Transmission Date: 20150326
  Serious: No
  Sender: FDA-Public Use
  Company Number: US-GILEAD-2014-0102527

PATIENT
  Age: 70 Year
  Sex: Female

DRUGS (5)
  1. LETAIRIS [Suspect]
     Active Substance: AMBRISENTAN
     Indication: PULMONARY ARTERIAL HYPERTENSION
     Dosage: 10 MG, QD
     Route: 065
     Dates: start: 20130318
  2. COUMADIN [Concomitant]
     Active Substance: WARFARIN SODIUM
  3. TYVASO [Concomitant]
     Active Substance: TREPROSTINIL
  4. RIOCIGUAT [Suspect]
     Active Substance: RIOCIGUAT
     Indication: PRODUCT USED FOR UNKNOWN INDICATION
     Route: 065
  5. REVATIO [Concomitant]
     Active Substance: SILDENAFIL CITRATE

REACTIONS (6)
  - Nausea [Unknown]
  - Dyspepsia [Unknown]
  - Dyspnoea [Unknown]
  - Gout [Unknown]
  - Herpes zoster [Unknown]
  - Vision blurred [Unknown]
